FAERS Safety Report 21753057 (Version 1)
Quarter: 2022Q4

REPORT INFORMATION
  Report Type: Spontaneous
  Country: US (occurrence: US)
  Receive Date: 20221220
  Receipt Date: 20221220
  Transmission Date: 20230113
  Serious: No
  Sender: FDA-Public Use
  Company Number: US-TARO PHARMACEUTICALS USA INC.-2021TAR01164

PATIENT

DRUGS (2)
  1. PROCTOSOL-HC [Suspect]
     Active Substance: HYDROCORTISONE
     Indication: Haemorrhoids
     Dosage: UNK, HEMORRHOIDS ROUTE OF ADMINISTRATION.
     Route: 065
  2. PROCTOSOL-HC [Suspect]
     Active Substance: HYDROCORTISONE
     Dosage: UNK, STARTED 2 WEEKS LATER
     Route: 065

REACTIONS (7)
  - Anal pruritus [Unknown]
  - Vulvovaginal pruritus [Unknown]
  - Rash [Unknown]
  - Application site pain [Unknown]
  - Application site irritation [Unknown]
  - Product substitution issue [Unknown]
  - Product use in unapproved indication [Not Recovered/Not Resolved]
